FAERS Safety Report 9540454 (Version 2)
Quarter: 2013Q3

REPORT INFORMATION
  Report Type: Spontaneous
  Country: US (occurrence: US)
  Receive Date: 20130920
  Receipt Date: 20130920
  Transmission Date: 20140515
  Serious: Yes (Other)
  Sender: FDA-Public Use
  Company Number: US-ELI_LILLY_AND_COMPANY-US201309000524

PATIENT
  Sex: Male

DRUGS (3)
  1. HUMALOG 25% LISPRO, 75% NPL [Suspect]
     Dosage: 40 U, BID
  2. HUMALOG 25% LISPRO, 75% NPL [Suspect]
     Dosage: 40 U, BID
  3. LANTUS [Concomitant]

REACTIONS (2)
  - Blindness [Unknown]
  - Accident [Unknown]
